FAERS Safety Report 6525523-0 (Version None)
Quarter: 2010Q1

REPORT INFORMATION
  Report Type: 
  Country: None (occurrence: None)
  Receive Date: 20100104
  Receipt Date: 20091223
  Transmission Date: 20100710
  Serious: Yes (Hospitalization)
  Sender: FDA-Public Use
  Company Number: US-ASTRAZENECA-2009SE33322

PATIENT
  Age: 52 Year
  Sex: Female

DRUGS (5)
  1. NEXIUM [Suspect]
     Indication: GASTRITIS
     Route: 048
     Dates: start: 20091019, end: 20091030
  2. XARELTO [Suspect]
     Indication: PROPHYLAXIS
     Route: 048
     Dates: start: 20091020, end: 20091102
  3. DAFALGAN [Concomitant]
     Indication: PAIN
     Dosage: 3 G
     Route: 048
     Dates: start: 20091019
  4. MEFENACID [Concomitant]
     Indication: PAIN
     Dosage: 1500 MG
     Route: 048
     Dates: start: 20091019, end: 20091030
  5. FRAXIFORTE [Concomitant]
     Indication: PROPHYLAXIS
     Route: 058
     Dates: start: 20091103

REACTIONS (4)
  - CHOLESTATIC LIVER INJURY [None]
  - LIVER FUNCTION TEST ABNORMAL [None]
  - NAUSEA [None]
  - PYREXIA [None]
